FAERS Safety Report 5917172-X (Version None)
Quarter: 2008Q4

REPORT INFORMATION
  Report Type: 
  Country: None (occurrence: None)
  Receive Date: 20081014
  Receipt Date: 20081002
  Transmission Date: 20090506
  Serious: Yes (Other)
  Sender: FDA-Public Use
  Company Number: US-ROCHE-589358

PATIENT
  Age: 49 Year
  Sex: Male

DRUGS (5)
  1. PEGASYS [Suspect]
     Indication: HEPATITIS C
     Route: 065
     Dates: end: 20060101
  2. COPEGUS [Suspect]
     Indication: HEPATITIS C
     Route: 065
     Dates: end: 20060101
  3. NEXIUM [Concomitant]
     Dosage: RECEIVED THERAPY FOR THREE YEARS
     Dates: start: 20050101
  4. OXYCONTIN [Concomitant]
     Dosage: RECEIVED THERAPY FOR TWO YEARS
     Dates: start: 20060101
  5. AMBIEN [Concomitant]

REACTIONS (5)
  - MUSCULOSKELETAL DISORDER [None]
  - NAUSEA [None]
  - PELVIC FRACTURE [None]
  - VISION BLURRED [None]
  - VOMITING [None]
